FAERS Safety Report 7824870-X (Version None)
Quarter: 2011Q4

REPORT INFORMATION
  Report Type: 
  Country: None (occurrence: None)
  Receive Date: 20111019
  Receipt Date: 20111018
  Transmission Date: 20120403
  Serious: Yes (Hospitalization, Other)
  Sender: FDA-Public Use
  Company Number: PHHY2011IN91456

PATIENT
  Age: 53 Year
  Sex: Female

DRUGS (2)
  1. ZOMETA [Suspect]
     Dosage: 4MG/5ML
     Dates: start: 20110729
  2. ZOMETA [Suspect]
     Dosage: 4MG/5ML
     Dates: start: 20100901

REACTIONS (3)
  - METASTASES TO BONE [None]
  - OSTEOPOROTIC FRACTURE [None]
  - ARTHRALGIA [None]
